FAERS Safety Report 24991666 (Version 2)
Quarter: 2025Q4

REPORT INFORMATION
  Report Type: Spontaneous
  Country: CN (occurrence: CN)
  Receive Date: 20250220
  Receipt Date: 20251218
  Transmission Date: 20260117
  Serious: Yes (Other)
  Sender: CSL BEHRING
  Company Number: CN-CMS-2025CMS000292

PATIENT
  Age: 63 Year
  Sex: Male
  Weight: 62.5 kg

DRUGS (6)
  1. VELPHORO [Suspect]
     Active Substance: SUCROFERRIC OXYHYDROXIDE
     Indication: End stage renal disease
     Dosage: 0.5 G, TID
     Route: 048
     Dates: start: 20250206
  2. VELPHORO [Suspect]
     Active Substance: SUCROFERRIC OXYHYDROXIDE
     Indication: Blood phosphorus increased
  3. CALCIUM CARBONATE\CHOLECALCIFEROL [Concomitant]
     Active Substance: CALCIUM CARBONATE\CHOLECALCIFEROL
     Indication: End stage renal disease
     Dosage: 0.6 G, BID
     Route: 048
     Dates: start: 20250206, end: 20250212
  4. CALCIUM CARBONATE\CHOLECALCIFEROL [Concomitant]
     Active Substance: CALCIUM CARBONATE\CHOLECALCIFEROL
     Indication: Blood phosphorus increased
  5. CALCITRIOL [Concomitant]
     Active Substance: CALCITRIOL
     Indication: Blood phosphorus increased
     Dosage: 0.5 ?G, QD
     Route: 048
     Dates: start: 20250206, end: 20250212
  6. SUCROFERRIC OXYHYDROXIDE [Concomitant]
     Active Substance: SUCROFERRIC OXYHYDROXIDE

REACTIONS (2)
  - Faeces discoloured [Recovered/Resolved]
  - Vomiting [Recovering/Resolving]

NARRATIVE: CASE EVENT DATE: 20250210
